FAERS Safety Report 15620530 (Version 1)
Quarter: 2018Q4

REPORT INFORMATION
  Report Type: Spontaneous
  Country: US (occurrence: US)
  Receive Date: 20181115
  Receipt Date: 20181115
  Transmission Date: 20190205
  Serious: No
  Sender: FDA-Public Use
  Company Number: US-AMGEN-USASP2018157078

PATIENT
  Age: 72 Year
  Sex: Female

DRUGS (1)
  1. PROLIA [Suspect]
     Active Substance: DENOSUMAB
     Indication: PRODUCT USED FOR UNKNOWN INDICATION
     Dosage: UNK
     Route: 065

REACTIONS (5)
  - Stomatitis [Unknown]
  - Therapy non-responder [Unknown]
  - Asthma [Unknown]
  - Oral mucosal blistering [Not Recovered/Not Resolved]
  - Gingival disorder [Unknown]

NARRATIVE: CASE EVENT DATE: 201806
